FAERS Safety Report 19462581 (Version 1)
Quarter: 2021Q2

REPORT INFORMATION
  Report Type: Spontaneous
  Country: FR (occurrence: FR)
  Receive Date: 20210625
  Receipt Date: 20210625
  Transmission Date: 20210717
  Serious: Yes (Hospitalization)
  Sender: FDA-Public Use
  Company Number: FR-TEVA-2021-FR-1925329

PATIENT
  Age: 68 Year
  Sex: Male
  Weight: 85 kg

DRUGS (18)
  1. IRBESARTAN. [Suspect]
     Active Substance: IRBESARTAN
     Indication: HYPERTENSION
     Route: 048
     Dates: start: 20180322, end: 20190318
  2. KARDEGIC [Concomitant]
     Active Substance: ASPIRIN DL-LYSINE
  3. LAMOTRIGINE. [Concomitant]
     Active Substance: LAMOTRIGINE
  4. LANSOPRAZOLE. [Concomitant]
     Active Substance: LANSOPRAZOLE
  5. PARACETAMOL [Concomitant]
     Active Substance: ACETAMINOPHEN
  6. ABASAGLAR [Concomitant]
     Active Substance: INSULIN GLARGINE
  7. MIRCERA [Concomitant]
     Active Substance: METHOXY POLYETHYLENE GLYCOL-EPOETIN BETA
  8. FELODIPINE. [Concomitant]
     Active Substance: FELODIPINE
  9. ATROPINE. [Concomitant]
     Active Substance: ATROPINE
  10. COLCHICINE. [Suspect]
     Active Substance: COLCHICINE
     Indication: ARTHRITIS
     Route: 048
     Dates: start: 20190316, end: 20190318
  11. CHLORURE DE SODIUM [Concomitant]
     Active Substance: SODIUM CHLORIDE
  12. URAPIDIL [Concomitant]
     Active Substance: URAPIDIL
  13. NOVORAPID [Concomitant]
     Active Substance: INSULIN ASPART
  14. ACICLOVIR [Suspect]
     Active Substance: ACYCLOVIR
     Indication: HERPES SIMPLEX
     Dosage: 800 MG
     Route: 042
     Dates: start: 20190305, end: 20190326
  15. KEPPRA [Concomitant]
     Active Substance: LEVETIRACETAM
  16. BISOPROLOL (FUMARATE ACIDE DE) [Concomitant]
     Active Substance: BISOPROLOL FUMARATE
  17. FOSCARNET SODIQUE [Suspect]
     Active Substance: FOSCARNET SODIUM
     Indication: UVEITIS
     Dosage: 3 DOSAGE FORMS
     Route: 031
     Dates: start: 20190305
  18. TOBRADEX [Concomitant]
     Active Substance: DEXAMETHASONE\TOBRAMYCIN

REACTIONS (1)
  - Chronic kidney disease [Recovered/Resolved with Sequelae]

NARRATIVE: CASE EVENT DATE: 20190318
